FAERS Safety Report 9733826 (Version 1)
Quarter: 2013Q4

REPORT INFORMATION
  Report Type: Spontaneous
  Country: US (occurrence: US)
  Receive Date: 20131205
  Receipt Date: 20131205
  Transmission Date: 20140711
  Serious: Yes (Hospitalization)
  Sender: FDA-Public Use
  Company Number: US-TEVA-448951USA

PATIENT
  Age: 48 Year
  Sex: Female

DRUGS (4)
  1. FENTANYL [Suspect]
     Route: 051
  2. MORPHINE [Suspect]
     Route: 051
  3. ANESTHETIC [Suspect]
     Route: 051
  4. ANALGESICS [Suspect]
     Route: 051

REACTIONS (5)
  - Respiratory arrest [Recovered/Resolved]
  - Bradycardia [Recovered/Resolved]
  - Lethargy [Recovered/Resolved]
  - Somnolence [Recovered/Resolved]
  - Accidental exposure to product [Recovered/Resolved]
